FAERS Safety Report 7141134-0 (Version None)
Quarter: 2010Q4

REPORT INFORMATION
  Report Type: 
  Country: None (occurrence: None)
  Receive Date: 20101207
  Receipt Date: 20101126
  Transmission Date: 20110411
  Serious: Yes (Death)
  Sender: FDA-Public Use
  Company Number: JP-SHIRE-SPV1-2010-02110

PATIENT
  Age: 59 Year
  Sex: Male

DRUGS (13)
  1. LANTHANUM CARBONATE [Suspect]
     Indication: HYPERPHOSPHATAEMIA
     Dosage: 750 MG, OTHER, TOTAL DAILY DOSE 9IMMEDIATELY AFTER MEALS)
     Route: 048
     Dates: start: 20090507, end: 20091219
  2. CALCIUM CARBONATE [Suspect]
     Indication: HYPERPHOSPHATAEMIA
     Dosage: 12 DF, UNKNOWN
     Route: 048
     Dates: end: 20090617
  3. CALCIUM CARBONATE [Suspect]
     Dosage: 9 DF, UNKNOWN
     Route: 048
     Dates: start: 20090618, end: 20090909
  4. CALCIUM CARBONATE [Suspect]
     Dosage: 3 DF, UNKNOWN
     Route: 048
     Dates: start: 20090910, end: 20091021
  5. CALCIUM CARBONATE [Suspect]
     Dosage: 6 DF, UNKNOWN
     Route: 048
     Dates: start: 20091022, end: 20091219
  6. DORNER [Concomitant]
     Indication: PRODUCT USED FOR UNKNOWN INDICATION
     Dosage: 60 ?G, UNKNOWN
     Route: 048
  7. OPALMON [Concomitant]
     Indication: PRODUCT USED FOR UNKNOWN INDICATION
     Dosage: 15 ?G, UNKNOWN
     Route: 048
  8. CARVEDILOL [Concomitant]
     Indication: PRODUCT USED FOR UNKNOWN INDICATION
     Dosage: 1.25 MG, UNKNOWN
     Route: 048
  9. TAKEPRON [Concomitant]
     Indication: PRODUCT USED FOR UNKNOWN INDICATION
     Dosage: 15 MG, UNKNOWN
     Route: 048
  10. MUCOSTA [Concomitant]
     Indication: PRODUCT USED FOR UNKNOWN INDICATION
     Dosage: 300 MG, UNKNOWN
     Route: 048
  11. DOPS [Concomitant]
     Indication: PRODUCT USED FOR UNKNOWN INDICATION
     Dosage: 200 MG, UNKNOWN
     Route: 048
  12. ATARAX [Concomitant]
     Indication: PRODUCT USED FOR UNKNOWN INDICATION
     Dosage: 50 MG, UNKNOWN
     Route: 048
  13. JUVELA N [Concomitant]
     Indication: PRODUCT USED FOR UNKNOWN INDICATION
     Dosage: 600 MG, UNKNOWN
     Route: 048

REACTIONS (1)
  - DEATH [None]
